FAERS Safety Report 8313728-8 (Version None)
Quarter: 2012Q2

REPORT INFORMATION
  Report Type: 
  Country: None (occurrence: None)
  Receive Date: 20120426
  Receipt Date: 20120423
  Transmission Date: 20120825
  Serious: Yes (Death)
  Sender: FDA-Public Use
  Company Number: PHHY2012JP006852

PATIENT
  Sex: Male

DRUGS (3)
  1. NIVADIL [Concomitant]
     Indication: HYPERTENSION
     Dosage: 2 MG, UNK
     Route: 048
     Dates: start: 20090624, end: 20091204
  2. DIOVAN HCT [Suspect]
     Indication: HYPERTENSION
     Dosage: 1 DF, QD (80/12.5 MG)
     Route: 048
     Dates: start: 20090624, end: 20091009
  3. DIOVAN HCT [Suspect]
     Dosage: 1 DF, QD (80/6.25 MG)
     Route: 048
     Dates: start: 20091010, end: 20091022

REACTIONS (3)
  - DEATH [None]
  - HYPERURICAEMIA [None]
  - BLOOD PRESSURE INADEQUATELY CONTROLLED [None]
